FAERS Safety Report 5129499-2 (Version None)
Quarter: 2006Q4

REPORT INFORMATION
  Report Type: 
  Country: None (occurrence: None)
  Receive Date: 20061012
  Receipt Date: 20061005
  Transmission Date: 20070319
  Serious: Yes (Hospitalization)
  Sender: FDA-Public Use
  Company Number: 2006-05260

PATIENT
  Age: 47 Year
  Sex: Female

DRUGS (8)
  1. CHLORDIAZEPOXIDE/AMITRIPTYLINE  HCL [Suspect]
     Indication: DEPRESSION
     Dosage: ORAL
     Route: 048
  2. FLUOXETINE [Suspect]
     Indication: DEPRESSION
     Dosage: ORAL
     Route: 048
  3. VENLAFAXINE HCL EXTENDED-RELEASE [Suspect]
     Indication: DEPRESSION
     Dosage: ORAL
     Route: 048
  4. LORAZEPAM [Concomitant]
  5. ZYPREXA [Concomitant]
  6. METOPROLOL TARTRATE [Concomitant]
  7. VICODIN [Concomitant]
  8. PANTOPRAZOLE SODIUM [Concomitant]

REACTIONS (2)
  - ISCHAEMIC HEPATITIS [None]
  - LOSS OF CONSCIOUSNESS [None]
